FAERS Safety Report 9441157 (Version 1)
Quarter: 2013Q3

REPORT INFORMATION
  Report Type: Spontaneous
  Country: US (occurrence: US)
  Receive Date: 20130805
  Receipt Date: 20130805
  Transmission Date: 20140515
  Serious: Yes (Hospitalization, Other)
  Sender: FDA-Public Use
  Company Number: PHHY2013US082148

PATIENT
  Age: 73 Year
  Sex: Female

DRUGS (2)
  1. ACETYLSALICYLIC ACID [Suspect]
     Route: 048
  2. ASPERCREME [Suspect]

REACTIONS (5)
  - Fall [Recovered/Resolved]
  - Loss of consciousness [Recovered/Resolved]
  - Aphonia [Unknown]
  - Dizziness [Unknown]
  - Incorrect drug administration duration [Unknown]
